FAERS Safety Report 18332298 (Version 1)
Quarter: 2020Q3

REPORT INFORMATION
  Report Type: Spontaneous
  Country: US (occurrence: US)
  Receive Date: 20200930
  Receipt Date: 20200930
  Transmission Date: 20201103
  Serious: Yes (Other)
  Sender: FDA-Public Use
  Company Number: US-FRESENIUS MEDICAL CARE RENAL THERAPIES GROUP-FMC-2009-001146

PATIENT
  Sex: Female

DRUGS (1)
  1. DELFLEX WITH DEXTROSE 2.5% LOW MAGNESIUM LOW CALCIUM [Suspect]
     Active Substance: CALCIUM CHLORIDE\DEXTROSE\MAGNESIUM CHLORIDE\SODIUM CHLORIDE\SODIUM LACTATE
     Indication: END STAGE RENAL DISEASE
     Dosage: 5 CYCLES WITH A LAST FILL OF 2000 ML, A DAYTIME EXCHANGE OF 2000 ML, SINCE 11MAY2020
     Route: 033
     Dates: start: 20200511

REACTIONS (1)
  - Fungal peritonitis [Recovering/Resolving]
